FAERS Safety Report 8049826-6 (Version None)
Quarter: 2012Q1

REPORT INFORMATION
  Report Type: 
  Country: None (occurrence: None)
  Receive Date: 20120117
  Receipt Date: 20110819
  Transmission Date: 20120608
  Serious: Yes (Other)
  Sender: FDA-Public Use
  Company Number: US-ROCHE-GNE320345

PATIENT
  Sex: Female
  Weight: 74.456 kg

DRUGS (8)
  1. DULCOLAX TABLET [Concomitant]
     Indication: HAEMORRHOIDS
  2. GLYBURIDE [Concomitant]
     Indication: GESTATIONAL DIABETES
  3. VENTOLIN [Concomitant]
  4. VENTOLIN [Concomitant]
     Indication: ASTHMA
  5. VITAMIN AND MINERAL PRENATAL SUPPLEMENT W/ FOLIC ACID CAP [Concomitant]
  6. OMALIZUMAB [Suspect]
     Indication: ASTHMA
     Dosage: UNK
     Dates: start: 20100606
  7. THEOPHYLLINE [Concomitant]
     Indication: ASTHMA
  8. VITAMIN AND MINERAL PRENATAL SUPPLEMENT W/ FOLIC ACID CAP [Concomitant]
     Indication: PREGNANCY

REACTIONS (2)
  - MATERNAL EXPOSURE DURING PREGNANCY [None]
  - GESTATIONAL DIABETES [None]
